FAERS Safety Report 8987676 (Version 2)
Quarter: 2013Q1

REPORT INFORMATION
  Report Type: Spontaneous
  Country: JP (occurrence: JP)
  Receive Date: 20121227
  Receipt Date: 20130131
  Transmission Date: 20140127
  Serious: No
  Sender: FDA-Public Use
  Company Number: JP-PFIZER INC-2012325304

PATIENT
  Age: 50 Year
  Sex: Male

DRUGS (1)
  1. PRO-BANTHINE [Suspect]

REACTIONS (1)
  - Arrhythmia [Recovered/Resolved]
